FAERS Safety Report 14732136 (Version 2)
Quarter: 2018Q2

REPORT INFORMATION
  Report Type: Spontaneous
  Country: DE (occurrence: DE)
  Receive Date: 20180409
  Receipt Date: 20180509
  Transmission Date: 20180711
  Serious: Yes (Other)
  Sender: FDA-Public Use
  Company Number: DE-ROCHE-2099657

PATIENT
  Age: 59 Year
  Sex: Female
  Weight: 100 kg

DRUGS (9)
  1. CYCLOPHOSPHAMID [Concomitant]
     Active Substance: CYCLOPHOSPHAMIDE
     Dosage: 3 CYCLES
     Route: 065
  2. L-THYROXIN [Concomitant]
     Active Substance: LEVOTHYROXINE SODIUM
     Indication: HYPOTHYROIDISM
     Route: 048
  3. DEKRISTOL [Concomitant]
     Active Substance: CHOLECALCIFEROL
     Route: 048
  4. HERCEPTIN [Suspect]
     Active Substance: TRASTUZUMAB
     Indication: INVASIVE LOBULAR BREAST CARCINOMA
     Route: 042
     Dates: start: 201404
  5. EPIRUBICIN [Concomitant]
     Active Substance: EPIRUBICIN
     Dosage: 3 CYCLES
     Route: 065
  6. 5-FU [Concomitant]
     Active Substance: FLUOROURACIL
     Indication: INVASIVE LOBULAR BREAST CARCINOMA
     Dosage: 3 CYCLES
     Route: 065
  7. KALINOR RETARD [Concomitant]
     Active Substance: POTASSIUM CHLORIDE
     Route: 048
  8. TAMOXIFEN [Concomitant]
     Active Substance: TAMOXIFEN
     Indication: INVASIVE LOBULAR BREAST CARCINOMA
     Route: 048
     Dates: start: 201407
  9. DOCETAXEL. [Concomitant]
     Active Substance: DOCETAXEL
     Dosage: 3 CYCLES
     Route: 065

REACTIONS (10)
  - Sudden hearing loss [Unknown]
  - Tinnitus [Unknown]
  - Dizziness [Unknown]
  - Intervertebral disc protrusion [Unknown]
  - Off label use [Unknown]
  - Osteochondrosis [Unknown]
  - Headache [Unknown]
  - Intentional product use issue [Unknown]
  - Balance disorder [Unknown]
  - Product use issue [Unknown]

NARRATIVE: CASE EVENT DATE: 20180221
